FAERS Safety Report 22284764 (Version 2)
Quarter: 2023Q2

REPORT INFORMATION
  Report Type: Spontaneous
  Country: RU (occurrence: RU)
  Receive Date: 20230504
  Receipt Date: 20230605
  Transmission Date: 20230721
  Serious: Yes (Other)
  Sender: FDA-Public Use
  Company Number: RU-MYLANLABS-2023M1045297

PATIENT
  Age: 52 Year
  Sex: Female

DRUGS (4)
  1. XALATAN [Suspect]
     Active Substance: LATANOPROST
     Indication: Intraocular pressure increased
     Dosage: UNK UNK, QD (1 TIME PER DAY IN OD)
     Route: 065
     Dates: start: 2010
  2. XALATAN [Suspect]
     Active Substance: LATANOPROST
     Indication: Open angle glaucoma
  3. BETAXOLOL [Suspect]
     Active Substance: BETAXOLOL
     Indication: Product used for unknown indication
     Dosage: UNK
     Route: 065
     Dates: start: 2012, end: 2014
  4. TIMOLOL [Suspect]
     Active Substance: TIMOLOL
     Indication: Product used for unknown indication
     Dosage: UNK
     Route: 065
     Dates: start: 2012, end: 2014

REACTIONS (5)
  - Arrhythmia [Unknown]
  - Disease progression [Unknown]
  - Blood pressure increased [Unknown]
  - Blood cholesterol increased [Unknown]
  - Dizziness [Unknown]

NARRATIVE: CASE EVENT DATE: 20120101
